FAERS Safety Report 4967463-4 (Version None)
Quarter: 2006Q2

REPORT INFORMATION
  Report Type: 
  Country: None (occurrence: None)
  Receive Date: 20060410
  Receipt Date: 20060330
  Transmission Date: 20061013
  Serious: Yes (Other)
  Sender: FDA-Public Use
  Company Number: 2006AC00620

PATIENT
  Sex: Male

DRUGS (1)
  1. CRESTOR [Suspect]
     Route: 048
     Dates: start: 20041201

REACTIONS (5)
  - ALANINE AMINOTRANSFERASE INCREASED [None]
  - DIZZINESS [None]
  - MYALGIA [None]
  - PERIPHERAL COLDNESS [None]
  - POLYNEUROPATHY [None]
